FAERS Safety Report 8800892 (Version 1)
Quarter: 2012Q4

REPORT INFORMATION
  Report Type: 
  Country: FR (occurrence: FR)
  Receive Date: 20120921
  Receipt Date: 20120921
  Transmission Date: 20130627
  Serious: Yes (Hospitalization)
  Sender: FDA-Public Use
  Company Number: FR-SANOFI-AVENTIS-2012SA068393

PATIENT
  Age: 51 Year
  Sex: Male

DRUGS (4)
  1. CLAFORAN [Suspect]
     Indication: SEPSIS NOS
     Route: 051
     Dates: start: 20120818, end: 20120818
  2. TAVANIC [Suspect]
     Indication: SEPSIS NOS
     Route: 065
     Dates: start: 20120813, end: 20120817
  3. ROCEPHINE [Suspect]
     Indication: SEPSIS NOS
     Dosage: last dose at 8:00 p.m.
     Route: 051
     Dates: start: 20120813, end: 20120817
  4. VANCOMYCINE [Suspect]
     Indication: SEPSIS NOS
     Route: 051
     Dates: start: 20120817, end: 20120817

REACTIONS (3)
  - Generalised oedema [Recovered/Resolved]
  - Laryngeal oedema [Recovered/Resolved]
  - Dysphagia [Recovered/Resolved]
